FAERS Safety Report 4798073-X (Version None)
Quarter: 2005Q4

REPORT INFORMATION
  Report Type: 
  Country: None (occurrence: None)
  Receive Date: 20051011
  Receipt Date: 20051011
  Transmission Date: 20060501
  Serious: Yes (Other)
  Sender: FDA-Public Use
  Company Number: None

PATIENT
  Age: 62 Year
  Sex: Female

DRUGS (1)
  1. NIASPAN [Suspect]
     Dosage: TAKE 3 TABLETS DAILY AT BEDTIME
     Dates: start: 20020101, end: 20050101

REACTIONS (4)
  - FLUSHING [None]
  - PAIN [None]
  - RASH ERYTHEMATOUS [None]
  - RASH PRURITIC [None]
